FAERS Safety Report 9282769 (Version 1)
Quarter: 2013Q2

REPORT INFORMATION
  Report Type: Spontaneous
  Country: US (occurrence: None)
  Receive Date: 20130509
  Receipt Date: 20130509
  Transmission Date: 20140414
  Serious: No
  Sender: FDA-Public Use
  Company Number: None

PATIENT
  Sex: Female
  Weight: 81.65 kg

DRUGS (1)
  1. BIOTENE [Suspect]

REACTIONS (6)
  - Tremor [None]
  - Tremor [None]
  - Disturbance in attention [None]
  - Hypophagia [None]
  - Somnolence [None]
  - Feeling abnormal [None]
